FAERS Safety Report 9224733 (Version 3)
Quarter: 2013Q2

REPORT INFORMATION
  Report Type: Spontaneous
  Country: US (occurrence: US)
  Receive Date: 20130411
  Receipt Date: 20130628
  Transmission Date: 20140414
  Serious: Yes (Hospitalization)
  Sender: FDA-Public Use
  Company Number: US-009507513-1304USA004958

PATIENT
  Age: 88 Year
  Sex: Female
  Weight: 61.68 kg

DRUGS (1)
  1. JANUVIA [Suspect]
     Indication: TYPE 2 DIABETES MELLITUS
     Dosage: 100 MG, QD
     Route: 048
     Dates: start: 20130402, end: 20130405

REACTIONS (2)
  - Cerebrovascular accident [Recovering/Resolving]
  - Epistaxis [Not Recovered/Not Resolved]
